FAERS Safety Report 9753725 (Version 1)
Quarter: 2013Q4

REPORT INFORMATION
  Report Type: Spontaneous
  Country: BR (occurrence: BR)
  Receive Date: 20131213
  Receipt Date: 20131213
  Transmission Date: 20140711
  Serious: Yes (Death, Hospitalization)
  Sender: FDA-Public Use
  Company Number: BR-SA-2013SA129297

PATIENT
  Age: 51 Year
  Sex: Male
  Weight: 81 kg

DRUGS (4)
  1. FUROSEMIDE [Suspect]
     Indication: SWELLING
     Route: 065
  2. ENBREL [Suspect]
     Indication: RHEUMATOID ARTHRITIS
     Dosage: FORM: SYRINGE
     Route: 058
     Dates: start: 20130919, end: 201310
  3. PROPANOLOL [Concomitant]
     Indication: HYPERTENSION
     Route: 065
  4. CAPTOPRIL [Concomitant]
     Indication: HYPERTENSION
     Route: 065

REACTIONS (5)
  - Death [Fatal]
  - Hepatic pain [Unknown]
  - Dysuria [Unknown]
  - Swelling [Unknown]
  - Drug ineffective [Unknown]
